FAERS Safety Report 10142883 (Version 2)
Quarter: 2014Q2

REPORT INFORMATION
  Report Type: Spontaneous
  Country: US (occurrence: US)
  Receive Date: 20140430
  Receipt Date: 20140508
  Transmission Date: 20141212
  Serious: Yes (Hospitalization, Disabling)
  Sender: FDA-Public Use
  Company Number: US-BAYER-2014-062937

PATIENT
  Age: 51 Year
  Sex: Female

DRUGS (4)
  1. YASMIN [Suspect]
     Dosage: UNK
     Route: 048
     Dates: start: 20060209, end: 20070127
  2. YAZ [Suspect]
     Route: 048
  3. LUNESTA [Concomitant]
     Dosage: UNK
     Route: 048
     Dates: start: 20060209, end: 20060523
  4. MULTIVITAMIN [Concomitant]
     Dosage: UNK
     Route: 048
     Dates: start: 20060209, end: 20060523

REACTIONS (9)
  - Pulmonary embolism [None]
  - Deep vein thrombosis [None]
  - Intracardiac thrombus [None]
  - Injury [None]
  - Pain [None]
  - Emotional distress [None]
  - Anxiety [None]
  - Fear of disease [None]
  - Pain [None]
